FAERS Safety Report 7951361-8 (Version None)
Quarter: 2011Q4

REPORT INFORMATION
  Report Type: 
  Country: None (occurrence: None)
  Receive Date: 20111201
  Receipt Date: 20111201
  Transmission Date: 20120403
  Serious: Yes (Other)
  Sender: FDA-Public Use
  Company Number: NZ-BAYER-2011-115158

PATIENT
  Sex: Male

DRUGS (1)
  1. BETASERON [Suspect]
     Indication: MULTIPLE SCLEROSIS
     Dosage: UNK
     Dates: end: 20110201

REACTIONS (4)
  - MENTAL IMPAIRMENT [None]
  - ILLUSION [None]
  - MEMORY IMPAIRMENT [None]
  - COGNITIVE DISORDER [None]
